FAERS Safety Report 10794974 (Version 1)
Quarter: 2015Q1

REPORT INFORMATION
  Report Type: Spontaneous
  Country: US (occurrence: US)
  Receive Date: 20150214
  Receipt Date: 20150214
  Transmission Date: 20150721
  Serious: Yes (Hospitalization)
  Sender: FDA-Public Use
  Company Number: US-BIOGENIDEC-2015BI014372

PATIENT
  Sex: Female

DRUGS (1)
  1. TECFIDERA [Suspect]
     Active Substance: DIMETHYL FUMARATE
     Indication: PRODUCT USED FOR UNKNOWN INDICATION
     Dates: start: 20140630, end: 20140701

REACTIONS (4)
  - Tremor [Recovered/Resolved]
  - Asthenia [Recovered/Resolved]
  - Feeling hot [Recovered/Resolved]
  - Metabolic disorder [Not Recovered/Not Resolved]
